FAERS Safety Report 20145669 (Version 2)
Quarter: 2021Q4

REPORT INFORMATION
  Report Type: Spontaneous
  Country: JP (occurrence: None)
  Receive Date: 20211203
  Receipt Date: 20211223
  Transmission Date: 20220304
  Serious: Yes (Hospitalization, Other)
  Sender: FDA-Public Use
  Company Number: 2021A849496

PATIENT
  Age: 81 Year
  Sex: Male

DRUGS (1)
  1. LOKELMA [Suspect]
     Active Substance: SODIUM ZIRCONIUM CYCLOSILICATE
     Indication: Hyperkalaemia
     Dosage: DOSE UNKNOWN
     Route: 048
     Dates: start: 20211028, end: 20211108

REACTIONS (3)
  - Cardiac failure congestive [Recovering/Resolving]
  - Interstitial lung disease [Unknown]
  - Oedema [Unknown]

NARRATIVE: CASE EVENT DATE: 20211108
